FAERS Safety Report 18715024 (Version 2)
Quarter: 2021Q2

REPORT INFORMATION
  Report Type: Report from Study
  Country: None (occurrence: US)
  Receive Date: 20210107
  Receipt Date: 20210607
  Transmission Date: 20210717
  Serious: Yes (Hospitalization)
  Sender: FDA-Public Use
  Company Number: US-ABBVIE-21K-163-3720427-00

PATIENT
  Sex: Female

DRUGS (2)
  1. RINVOQ [Suspect]
     Active Substance: UPADACITINIB
     Indication: RHEUMATOID ARTHRITIS
     Dosage: EXTENDED RELEASE
     Route: 048
     Dates: start: 20200701
  2. RINVOQ [Suspect]
     Active Substance: UPADACITINIB
     Route: 048

REACTIONS (11)
  - Stomatitis [Unknown]
  - Weight decreased [Unknown]
  - Surgery [Unknown]
  - Hypertension [Unknown]
  - Dry mouth [Unknown]
  - Nail bed bleeding [Unknown]
  - Heart rate increased [Unknown]
  - Skin laceration [Unknown]
  - Stomatitis [Recovered/Resolved]
  - Impaired healing [Unknown]
  - Dry skin [Unknown]
